FAERS Safety Report 16320845 (Version 1)
Quarter: 2019Q2

REPORT INFORMATION
  Report Type: Spontaneous
  Country: US (occurrence: US)
  Receive Date: 20190516
  Receipt Date: 20190516
  Transmission Date: 20190711
  Serious: No
  Sender: FDA-Public Use
  Company Number: US-GLAXOSMITHKLINE-US2019AMR082062

PATIENT
  Sex: Female

DRUGS (1)
  1. NUCALA [Suspect]
     Active Substance: MEPOLIZUMAB
     Indication: ASTHMA
     Dosage: UNK
     Route: 042
     Dates: start: 2018

REACTIONS (4)
  - Asthma [Unknown]
  - Hypersensitivity [Unknown]
  - Malaise [Unknown]
  - Sinusitis [Recovered/Resolved]

NARRATIVE: CASE EVENT DATE: 2019
